FAERS Safety Report 7519101-4 (Version None)
Quarter: 2011Q2

REPORT INFORMATION
  Report Type: 
  Country: None (occurrence: None)
  Receive Date: 20110602
  Receipt Date: 20110519
  Transmission Date: 20111010
  Serious: Yes (Other)
  Sender: FDA-Public Use
  Company Number: PHHY2010JP80902

PATIENT
  Sex: Female
  Weight: 71 kg

DRUGS (11)
  1. EXJADE [Suspect]
     Dosage: 250 MG, UNK
     Route: 048
     Dates: start: 20100723
  2. GLYCYRON [Concomitant]
     Dosage: 6 DF, UNK
     Route: 048
     Dates: start: 20090828, end: 20100527
  3. URSO 250 [Concomitant]
     Dosage: 600 MG, UNK
     Route: 048
     Dates: start: 20090828
  4. URSO 250 [Concomitant]
     Dosage: 300 MG, UNK
     Route: 048
  5. PROGRAF [Concomitant]
     Dosage: 1 MG, UNK
     Route: 048
     Dates: start: 20050311
  6. GLYCYRON [Concomitant]
     Dosage: 2 DF, UNK
     Route: 048
     Dates: end: 20100527
  7. URSO 250 [Concomitant]
     Dosage: 300 MG, UNK
     Route: 048
  8. EXJADE [Suspect]
     Indication: IRON OVERLOAD
     Dosage: 125 MG, UNK
     Route: 048
     Dates: start: 20091009, end: 20100722
  9. MAGNESIUM SULFATE [Concomitant]
     Dosage: 500 MG, QD
     Route: 048
     Dates: start: 20090911, end: 20100422
  10. URSO 250 [Concomitant]
     Dosage: 200 MG, UNK
     Route: 048
  11. GLYCYRON [Concomitant]
     Dosage: 3 DF, UNK
     Route: 048

REACTIONS (5)
  - CONCOMITANT DISEASE AGGRAVATED [None]
  - ASPARTATE AMINOTRANSFERASE INCREASED [None]
  - SERUM FERRITIN INCREASED [None]
  - ALANINE AMINOTRANSFERASE INCREASED [None]
  - LIVER DISORDER [None]
